FAERS Safety Report 7383254-1 (Version None)
Quarter: 2011Q1

REPORT INFORMATION
  Report Type: 
  Country: None (occurrence: None)
  Receive Date: 20110325
  Receipt Date: 20110325
  Transmission Date: 20110831
  Serious: Yes (Hospitalization)
  Sender: FDA-Public Use
  Company Number: None

PATIENT
  Age: 86 Year
  Sex: Female
  Weight: 80 kg

DRUGS (16)
  1. COUMADIN [Suspect]
     Indication: DEEP VEIN THROMBOSIS
     Dosage: 2.5MG T TH S PO  CHRONIC
     Route: 048
  2. BENADRYL [Concomitant]
  3. PROBIOTIC [Concomitant]
  4. ATENOLOL [Concomitant]
  5. COUMADIN [Suspect]
     Indication: DEEP VEIN THROMBOSIS
     Dosage: 5MG SMWF PO  CHRONIC
     Route: 048
  6. OMEPRAZOLE [Concomitant]
  7. ALBUTEROL [Concomitant]
  8. TYLENOL (CAPLET) [Concomitant]
  9. ARICEPT [Concomitant]
  10. PROZAC [Concomitant]
  11. FLAGYL [Concomitant]
  12. BUDESONIDE/FORMOTEROL [Concomitant]
  13. FIBERALL [Concomitant]
  14. LEVOTHYROXINE [Concomitant]
  15. TIOTROPIUM [Concomitant]
  16. BENICAR [Concomitant]

REACTIONS (4)
  - INTERNATIONAL NORMALISED RATIO INCREASED [None]
  - REFUSAL OF TREATMENT BY PATIENT [None]
  - DRUG INTERACTION [None]
  - CONVULSION [None]
